FAERS Safety Report 9530261 (Version 3)
Quarter: 2014Q3

REPORT INFORMATION
  Report Type: Spontaneous
  Country: JP (occurrence: JP)
  Receive Date: 20130917
  Receipt Date: 20140909
  Transmission Date: 20150326
  Serious: Yes (Other)
  Sender: FDA-Public Use
  Company Number: PHHY2013JP100109

PATIENT
  Sex: Male

DRUGS (3)
  1. PREDNISOLONE. [Suspect]
     Active Substance: PREDNISOLONE
     Dosage: UNK
     Route: 064
  2. ULTRAVIOLET-B TREATMENT [Suspect]
     Active Substance: UNSPECIFIED INGREDIENT
     Route: 064
  3. NEORAL [Suspect]
     Active Substance: CYCLOSPORINE
     Route: 064

REACTIONS (3)
  - Low birth weight baby [Unknown]
  - Foetal growth restriction [Unknown]
  - Foetal exposure during pregnancy [Unknown]
